FAERS Safety Report 9143694 (Version 2)
Quarter: 2013Q2

REPORT INFORMATION
  Report Type: Report from Study
  Country: DE (occurrence: DE)
  Receive Date: 20130306
  Receipt Date: 20130502
  Transmission Date: 20140414
  Serious: Yes (Hospitalization)
  Sender: FDA-Public Use
  Company Number: DE-ROCHE-1152984

PATIENT
  Age: 49 Year
  Sex: Female
  Weight: 67 kg

DRUGS (4)
  1. BEVACIZUMAB [Suspect]
     Indication: OVARIAN CANCER
     Dosage: DAILY DOSE: 15 MG/KG = 1050 MG, LAST DATE OF DOSE PRIOR TO 1ST EVENT 29/OCT/2012, DAILY DOSE:15MG/KG
     Route: 042
     Dates: start: 20120803
  2. CARBOPLATIN [Suspect]
     Indication: OVARIAN CANCER
     Dosage: DAILY DOSE: AUC 5 680 MG, LAST DOSE PRIOR TO 1ST EPISODE 29/OCT/2012,DAILY DOSE: AUC 5 671(UNIT NOT
     Route: 042
     Dates: start: 20120803
  3. PACLITAXEL [Suspect]
     Indication: OVARIAN CANCER
     Dosage: DAILY DOSE: 175 MG/M2, 309 (UNIT UNKNOWN), LAST DOSE PRIOR TO 1ST EPISODE:/OCT/2012, DAILY DOSE175MG
     Route: 042
     Dates: start: 20120803
  4. ARIXTRA [Concomitant]
     Indication: THROMBOSIS
     Dosage: LAST DOSE PRIOR TO 2ND EPISODE:27/FEB/2013
     Route: 058
     Dates: start: 20130201

REACTIONS (2)
  - Pyrexia [Recovered/Resolved]
  - Pyrexia [Recovered/Resolved]
